FAERS Safety Report 8984623 (Version 1)
Quarter: 2012Q4

REPORT INFORMATION
  Report Type: 
  Country: US (occurrence: US)
  Receive Date: 20121226
  Receipt Date: 20121226
  Transmission Date: 20130627
  Serious: Yes (Hospitalization)
  Sender: FDA-Public Use
  Company Number: US-JNJCP-30000139987

PATIENT
  Sex: Female

DRUGS (3)
  1. NEUTROGENA DERMATOLOGICS SKIN ID ANTI ACNE TREATMENT [Suspect]
     Indication: ACNE
     Route: 061
  2. NEUTROGENA DERMATOLOGICS SKIN ID HYDRATOR [Suspect]
     Indication: ACNE
     Route: 061
  3. NTG SKIN ID CREAM CLEANSER [Suspect]
     Indication: ACNE
     Route: 061

REACTIONS (4)
  - Sunburn [Unknown]
  - Application site dryness [Unknown]
  - Application site irritation [Unknown]
  - Drug ineffective [Unknown]
